FAERS Safety Report 7469290-5 (Version None)
Quarter: 2011Q2

REPORT INFORMATION
  Report Type: 
  Country: None (occurrence: None)
  Receive Date: 20110429
  Receipt Date: 20110418
  Transmission Date: 20111010
  Serious: Yes (Hospitalization, Other)
  Sender: FDA-Public Use
  Company Number: CH-002225

PATIENT
  Age: 72 Year
  Sex: Male

DRUGS (3)
  1. TRAZODONE HCL [Suspect]
     Indication: DEPRESSION
  2. BUPROPION HCL [Suspect]
     Indication: DEPRESSION
     Dosage: 300 MG
  3. LITHIUM [Suspect]
     Indication: DEPRESSION

REACTIONS (10)
  - DRUG INTERACTION [None]
  - DELIRIUM [None]
  - THINKING ABNORMAL [None]
  - SUICIDE ATTEMPT [None]
  - WEIGHT INCREASED [None]
  - TREMOR [None]
  - HALLUCINATION, VISUAL [None]
  - NEUROTOXICITY [None]
  - ATAXIA [None]
  - METABOLIC ENCEPHALOPATHY [None]
